FAERS Safety Report 6808087-3 (Version None)
Quarter: 2010Q2

REPORT INFORMATION
  Report Type: 
  Country: None (occurrence: None)
  Receive Date: 20100629
  Receipt Date: 20090318
  Transmission Date: 20101027
  Serious: No
  Sender: FDA-Public Use
  Company Number: US-PFIZER INC-2009185859

PATIENT

DRUGS (2)
  1. VIAGRA [Suspect]
  2. XANAX [Suspect]

REACTIONS (2)
  - DIZZINESS [None]
  - DRUG INEFFECTIVE [None]
